FAERS Safety Report 9463713 (Version 1)
Quarter: 2013Q3

REPORT INFORMATION
  Report Type: Report from Study
  Country: TW (occurrence: TW)
  Receive Date: 20130819
  Receipt Date: 20130819
  Transmission Date: 20140515
  Serious: Yes (Hospitalization)
  Sender: FDA-Public Use
  Company Number: PHHY2013TW088601

PATIENT
  Age: 59 Year
  Sex: Male
  Weight: 64 kg

DRUGS (1)
  1. ZOLEDRONATE [Suspect]
     Indication: PLASMA CELL MYELOMA
     Dosage: 4 MG, UNK
     Route: 042
     Dates: start: 20120917

REACTIONS (4)
  - Aortic dissection [Recovering/Resolving]
  - Chest discomfort [Recovering/Resolving]
  - Pericardial haemorrhage [Recovering/Resolving]
  - Dyspnoea [Recovering/Resolving]
